FAERS Safety Report 8430062-6 (Version None)
Quarter: 2012Q2

REPORT INFORMATION
  Report Type: 
  Country: None (occurrence: None)
  Receive Date: 20120612
  Receipt Date: 20120601
  Transmission Date: 20120825
  Serious: Yes (Other)
  Sender: FDA-Public Use
  Company Number: GB-ROCHE-1074232

PATIENT
  Age: 33 Year
  Sex: Male

DRUGS (12)
  1. CALCICHEW D3 [Concomitant]
     Indication: HEPATITIS C
     Route: 048
     Dates: start: 20110503
  2. MOVIPREP [Concomitant]
     Indication: CONSTIPATION
     Route: 048
     Dates: start: 20110427
  3. PEGASYS [Suspect]
     Indication: HEPATITIS C
     Route: 058
     Dates: start: 20110516
  4. RAMIPRIL [Interacting]
     Route: 065
     Dates: start: 20110822
  5. CLOZAPINE [Interacting]
     Indication: PRODUCT USED FOR UNKNOWN INDICATION
     Dates: start: 20120319, end: 20120401
  6. VENLAFAXINE HCL [Concomitant]
     Indication: DEPRESSION
     Route: 048
     Dates: start: 20101217
  7. RAMIPRIL [Interacting]
     Indication: HYPERTENSION
     Route: 065
     Dates: start: 20120302
  8. BECLOMETHASONE DIPROPIONATE [Concomitant]
     Indication: ASTHMA
     Dates: start: 20110525
  9. OMEPRAZOLE [Concomitant]
     Indication: DYSPEPSIA
     Route: 048
     Dates: start: 20101210
  10. RAMIPRIL [Interacting]
     Route: 065
     Dates: start: 20120306, end: 20120509
  11. CLOZAPINE [Interacting]
     Route: 048
     Dates: start: 20111025, end: 20120307
  12. RIBAVIRIN [Interacting]
     Indication: HEPATITIS C
     Route: 048
     Dates: start: 20110516

REACTIONS (4)
  - DRUG INTERACTION [None]
  - WHITE BLOOD CELL COUNT DECREASED [None]
  - NEUTROPHIL COUNT DECREASED [None]
  - NEUTROPENIA [None]
